FAERS Safety Report 7752164-X (Version None)
Quarter: 2011Q3

REPORT INFORMATION
  Report Type: 
  Country: None (occurrence: None)
  Receive Date: 20110915
  Receipt Date: 20110913
  Transmission Date: 20111222
  Serious: Yes (Other)
  Sender: FDA-Public Use
  Company Number: US-PFIZER INC-2011182020

PATIENT
  Sex: Female
  Weight: 82.08 kg

DRUGS (2)
  1. LYRICA [Suspect]
     Indication: PAIN IN EXTREMITY
     Dosage: 75 MG, 2X/DAY
     Route: 048
     Dates: start: 20110601, end: 20110601
  2. LYRICA [Suspect]
     Indication: BACK PAIN

REACTIONS (7)
  - SWELLING FACE [None]
  - PAIN IN EXTREMITY [None]
  - RASH MACULAR [None]
  - OEDEMA PERIPHERAL [None]
  - SWELLING [None]
  - EYE SWELLING [None]
  - SKIN DISCOLOURATION [None]
